FAERS Safety Report 23063304 (Version 1)
Quarter: 2023Q4

REPORT INFORMATION
  Report Type: Spontaneous
  Country: US (occurrence: None)
  Receive Date: 20231012
  Receipt Date: 20231012
  Transmission Date: 20240110
  Serious: Yes (Life-Threatening, Hospitalization)
  Sender: FDA-Public Use
  Company Number: None

PATIENT
  Age: 82 Year
  Sex: Female
  Weight: 106 kg

DRUGS (1)
  1. SUGAMMADEX [Suspect]
     Active Substance: SUGAMMADEX
     Indication: Neuromuscular blockade reversal
     Route: 042

REACTIONS (8)
  - Anaesthetic complication [None]
  - Endotracheal intubation complication [None]
  - Hypotension [None]
  - Hypersensitivity [None]
  - Electrocardiogram abnormal [None]
  - Tachycardia [None]
  - Tryptase increased [None]
  - Anaphylactic reaction [None]

NARRATIVE: CASE EVENT DATE: 20231005
